FAERS Safety Report 8876435 (Version 1)
Quarter: 2012Q4

REPORT INFORMATION
  Report Type: 
  Country: FR (occurrence: FR)
  Receive Date: 20121031
  Receipt Date: 20121031
  Transmission Date: 20130627
  Serious: Yes (Hospitalization)
  Sender: FDA-Public Use
  Company Number: FR-009507513-2008SP025768

PATIENT
  Age: 57 Year
  Sex: Male
  Weight: 97.5 kg

DRUGS (22)
  1. BLINDED PEGINTERFERON ALFA-2B [Suspect]
     Indication: HEPATITIS C
     Dosage: 50 Microgram, qw
     Route: 058
     Dates: start: 20061117, end: 20081212
  2. BLINDED PLACEBO [Suspect]
     Indication: HEPATITIS C
     Dosage: 50 Microgram, qw
     Route: 058
     Dates: start: 20061117, end: 20081212
  3. BLINDED POST TRIAL THERAPY [Suspect]
     Indication: HEPATITIS C
     Dosage: 50 Microgram, qw
     Route: 058
     Dates: start: 20061117, end: 20081212
  4. BLINDED POST TRIAL THERAPY [Suspect]
     Indication: HEPATITIS C
     Dosage: 50 Microgram, qw
     Route: 058
     Dates: start: 20061117, end: 20081212
  5. BLINDED PRE TRIAL THERAPY [Suspect]
     Indication: HEPATITIS C
     Dosage: 50 Microgram, qw
     Route: 058
     Dates: start: 20061117, end: 20081212
  6. BLINDED PRE TRIAL THERAPY [Suspect]
     Indication: HEPATITIS C
     Dosage: 50 Microgram, qw
     Route: 058
     Dates: start: 20061117, end: 20081212
  7. BLINDED RIBAVIRIN [Suspect]
     Indication: HEPATITIS C
     Dosage: 50 Microgram, qw
     Route: 058
     Dates: start: 20061117, end: 20081212
  8. BLINDED PEGINTERFERON ALFA-2B [Suspect]
     Route: 048
  9. BLINDED PLACEBO [Suspect]
     Route: 048
  10. BLINDED POST TRIAL THERAPY [Suspect]
     Route: 048
  11. BLINDED POST TRIAL THERAPY [Suspect]
     Route: 048
  12. BLINDED PRE TRIAL THERAPY [Suspect]
     Route: 048
  13. BLINDED PRE TRIAL THERAPY [Suspect]
     Route: 048
  14. BLINDED RIBAVIRIN [Suspect]
     Route: 048
  15. REBETOL [Suspect]
     Indication: HEPATITIS C
     Dosage: 600 mg, bid
     Route: 048
     Dates: start: 20061117, end: 20081217
  16. REBETOL [Suspect]
     Route: 058
  17. SOLIAN [Concomitant]
     Indication: DEPRESSION
     Dosage: 100 mg, BID
     Dates: start: 20080315
  18. EQUANIL [Concomitant]
     Indication: DEPRESSION
     Dosage: 250 mg, BID
     Route: 048
     Dates: start: 20071115
  19. DEBRIDAT [Concomitant]
     Indication: IRRITABLE BOWEL SYNDROME
     Dosage: 200 mg, BID
     Route: 048
     Dates: start: 200701
  20. POLYETHYLENE GLYCOL 3350 (+) POTASSIUM CHLORIDE (+) SODIUM BICARBONATE [Concomitant]
     Indication: CONSTIPATION
     Dosage: 1 DF, QD
     Dates: start: 20081101
  21. LASILIX [Concomitant]
     Indication: ASCITES
     Dosage: 40 mg, TID
     Route: 048
     Dates: start: 20081117
  22. ALDACTONE TABLETS [Concomitant]
     Indication: ASCITES
     Dosage: 75 mg, QD
     Route: 048
     Dates: start: 20081117

REACTIONS (1)
  - Ascites [Recovered/Resolved]
